FAERS Safety Report 18263032 (Version 1)
Quarter: 2020Q3

REPORT INFORMATION
  Report Type: Report from Study
  Country: MX (occurrence: MX)
  Receive Date: 20200914
  Receipt Date: 20200914
  Transmission Date: 20201103
  Serious: Yes (Death, Hospitalization)
  Sender: FDA-Public Use
  Company Number: NVSC2020MX223339

PATIENT
  Age: 69 Year
  Sex: Female
  Weight: 65 kg

DRUGS (4)
  1. FEMARA [Suspect]
     Active Substance: LETROZOLE
     Indication: BREAST CANCER
     Dosage: 1 DF, QD (FROM 2.5 YEARS AGO)
     Route: 048
     Dates: end: 20200817
  2. ENTRESTO [Suspect]
     Active Substance: SACUBITRIL\VALSARTAN
     Indication: CARDIAC FAILURE
     Dosage: 1 DF, QD (3 YEARS AGO)
     Route: 048
     Dates: end: 20200817
  3. ENTRESTO [Suspect]
     Active Substance: SACUBITRIL\VALSARTAN
     Indication: BLOOD PRESSURE MEASUREMENT
  4. INSULIN [Concomitant]
     Active Substance: INSULIN NOS
     Indication: DIABETES MELLITUS
     Dosage: UNK (8 YEARS AGO)
     Route: 059
     Dates: end: 20200817

REACTIONS (10)
  - Fall [Recovering/Resolving]
  - Peripheral swelling [Not Recovered/Not Resolved]
  - Product use in unapproved indication [Unknown]
  - Diabetes mellitus [Fatal]
  - Cardiac arrest [Fatal]
  - Deep vein thrombosis [Unknown]
  - Scar [Unknown]
  - Gait disturbance [Recovering/Resolving]
  - Limb discomfort [Unknown]
  - Product prescribing error [Unknown]

NARRATIVE: CASE EVENT DATE: 202008
